FAERS Safety Report 8919232 (Version 1)
Quarter: 2012Q4

REPORT INFORMATION
  Report Type: 
  Country: US (occurrence: US)
  Receive Date: 20121121
  Receipt Date: 20121121
  Transmission Date: 20130627
  Serious: No
  Sender: FDA-Public Use
  Company Number: US-PFIZER INC-2012291240

PATIENT
  Age: 52 Year
  Sex: Female
  Weight: 66.21 kg

DRUGS (2)
  1. CHANTIX [Suspect]
     Indication: SMOKING CESSATION THERAPY
     Dosage: 1 mg, 2x/day
     Route: 048
     Dates: start: 201210
  2. ELAVIL [Concomitant]
     Indication: CHRONIC PAIN
     Dosage: 200 mg, daily

REACTIONS (1)
  - Blood pressure increased [Recovered/Resolved]
